FAERS Safety Report 9290665 (Version 1)
Quarter: 2013Q2

REPORT INFORMATION
  Report Type: Spontaneous
  Country: US (occurrence: US)
  Receive Date: 20130515
  Receipt Date: 20130515
  Transmission Date: 20140414
  Serious: No
  Sender: FDA-Public Use
  Company Number: US-PFIZER INC-2013149844

PATIENT
  Age: 63 Year
  Sex: Female
  Weight: 82.54 kg

DRUGS (5)
  1. EFFEXOR XR [Suspect]
     Indication: DEPRESSION
     Dosage: UNK, 2X/DAY
     Dates: start: 2008, end: 20130511
  2. LOTREL [Concomitant]
     Indication: HYPERTENSION
     Dosage: 20 MG, DAILY
  3. ATORVASTATIN CALCIUM [Concomitant]
     Indication: BLOOD CHOLESTEROL INCREASED
     Dosage: 20 MG, DAILY
  4. AMBIEN [Concomitant]
     Indication: SLEEP DISORDER
     Dosage: 10 MG, DAILY
  5. IBUPROFEN [Concomitant]
     Indication: ARTHRITIS
     Dosage: 800 MG, 3X/DAY

REACTIONS (1)
  - Tinnitus [Not Recovered/Not Resolved]
